FAERS Safety Report 19884812 (Version 1)
Quarter: 2021Q3

REPORT INFORMATION
  Report Type: Spontaneous
  Country: US (occurrence: US)
  Receive Date: 20210927
  Receipt Date: 20210927
  Transmission Date: 20211014
  Serious: Yes (Death)
  Sender: FDA-Public Use
  Company Number: None

PATIENT
  Age: 89 Year
  Sex: Male
  Weight: 122 kg

DRUGS (2)
  1. BARICITINIB (BARICITINIB 1MG TAB) [Suspect]
     Active Substance: BARICITINIB
     Indication: COVID-19
  2. BARICITINIB (BARICITINIB 1MG TAB) [Suspect]
     Active Substance: BARICITINIB
     Indication: UPPER RESPIRATORY TRACT INFECTION
     Route: 048
     Dates: start: 20210916, end: 20210921

REACTIONS (4)
  - Acute respiratory failure [None]
  - Respiratory depression [None]
  - COVID-19 pneumonia [None]
  - Chronic obstructive pulmonary disease [None]

NARRATIVE: CASE EVENT DATE: 20210923
